FAERS Safety Report 23604158 (Version 2)
Quarter: 2024Q1

REPORT INFORMATION
  Report Type: Spontaneous
  Country: JP (occurrence: JP)
  Receive Date: 20240307
  Receipt Date: 20240315
  Transmission Date: 20240410
  Serious: No
  Sender: FDA-Public Use
  Company Number: JP-ASTELLAS-2024JP001725

PATIENT
  Age: 8 Decade
  Sex: Female

DRUGS (2)
  1. MIRABEGRON [Suspect]
     Active Substance: MIRABEGRON
     Indication: Product used for unknown indication
     Route: 065
  2. MIRABEGRON [Suspect]
     Active Substance: MIRABEGRON
     Route: 065

REACTIONS (1)
  - Overdose [Unknown]
